FAERS Safety Report 5526632-5 (Version None)
Quarter: 2007Q4

REPORT INFORMATION
  Report Type: 
  Country: None (occurrence: None)
  Receive Date: 20071123
  Receipt Date: 20070321
  Transmission Date: 20080405
  Serious: No
  Sender: FDA-Public Use
  Company Number: 2007MP000144

PATIENT

DRUGS (1)
  1. GLIADEL [Suspect]
     Dosage: ICER
     Dates: start: 20060101, end: 20060101

REACTIONS (2)
  - CEREBRAL HAEMORRHAGE [None]
  - HAEMORRHAGE INTRACRANIAL [None]
